FAERS Safety Report 16721207 (Version 4)
Quarter: 2019Q3

REPORT INFORMATION
  Report Type: Spontaneous
  Country: PL (occurrence: PL)
  Receive Date: 20190820
  Receipt Date: 20190828
  Transmission Date: 20191005
  Serious: Yes (Hospitalization)
  Sender: FDA-Public Use
  Company Number: PHHY2019PL190057

PATIENT
  Age: 56 Year
  Sex: Female

DRUGS (7)
  1. CIPROFLOXACIN. [Suspect]
     Active Substance: CIPROFLOXACIN
     Indication: PRODUCT USED FOR UNKNOWN INDICATION
     Dosage: UNK
     Route: 065
  2. TRIMETHOPRIM SULFAMETHOXAZOLE [Suspect]
     Active Substance: SULFAMETHOXAZOLE\TRIMETHOPRIM
     Indication: PRODUCT USED FOR UNKNOWN INDICATION
     Dosage: UNK
     Route: 065
  3. METHYLPREDNISOLONE. [Suspect]
     Active Substance: METHYLPREDNISOLONE
     Indication: PRODUCT USED FOR UNKNOWN INDICATION
     Dosage: UNK
     Route: 065
  4. PIPERACILLIN AND TAZOBACTAM [Suspect]
     Active Substance: PIPERACILLIN SODIUM\TAZOBACTAM SODIUM
     Indication: PRODUCT USED FOR UNKNOWN INDICATION
     Dosage: UNK
     Route: 065
  5. VANCOMYCIN [Suspect]
     Active Substance: VANCOMYCIN
     Indication: PRODUCT USED FOR UNKNOWN INDICATION
     Dosage: UNK
     Route: 065
  6. CLINDAMYCIN. [Suspect]
     Active Substance: CLINDAMYCIN
     Indication: PRODUCT USED FOR UNKNOWN INDICATION
     Dosage: UNK
     Route: 065
  7. AMOXICILLIN + CLAVULANATE POTASSIUM [Suspect]
     Active Substance: AMOXICILLIN\CLAVULANATE POTASSIUM
     Indication: PRODUCT USED FOR UNKNOWN INDICATION
     Dosage: UNK
     Route: 065

REACTIONS (14)
  - Respiratory gas exchange disorder [Unknown]
  - Lower respiratory tract infection bacterial [Unknown]
  - Body temperature increased [Unknown]
  - Lung disorder [Unknown]
  - Staphylococcal infection [Unknown]
  - Condition aggravated [Unknown]
  - Pathogen resistance [Unknown]
  - Antiphospholipid syndrome [Unknown]
  - Pneumonia [Unknown]
  - General physical health deterioration [Unknown]
  - Respiratory failure [Unknown]
  - Inflammatory marker increased [Unknown]
  - Pseudomonas infection [Unknown]
  - Klebsiella infection [Unknown]
